FAERS Safety Report 6761303-9 (Version None)
Quarter: 2010Q2

REPORT INFORMATION
  Report Type: 
  Country: None (occurrence: None)
  Receive Date: 20100608
  Receipt Date: 20090212
  Transmission Date: 20101027
  Serious: Yes (Hospitalization, Other)
  Sender: FDA-Public Use
  Company Number: PHBS2009AU00809

PATIENT
  Age: 84 Year
  Sex: Female

DRUGS (5)
  1. CLOFAZIMINE [Suspect]
     Indication: LEPROSY
     Dosage: 50 MG/DAY
  2. CLOFAZIMINE [Suspect]
     Dosage: 300 MG, QMO
  3. RIFAMPICIN [Suspect]
     Indication: LEPROSY
     Dosage: 600 MG MONTHLY
  4. DAPSONE [Suspect]
     Indication: LEPROSY
     Dosage: 100 MG MONTHLY
  5. MINOCYCLINE HCL [Suspect]
     Indication: LEPROSY
     Dosage: 100 MG DAILY

REACTIONS (7)
  - DERMATITIS [None]
  - DRUG RASH WITH EOSINOPHILIA AND SYSTEMIC SYMPTOMS [None]
  - GRANULOMA [None]
  - NEUROPATHY PERIPHERAL [None]
  - PAIN IN EXTREMITY [None]
  - TUBERCULOID LEPROSY [None]
  - TYPE IV HYPERSENSITIVITY REACTION [None]
